FAERS Safety Report 4943249-1 (Version None)
Quarter: 2006Q1

REPORT INFORMATION
  Report Type: 
  Country: None (occurrence: None)
  Receive Date: 20060314
  Receipt Date: 20050504
  Transmission Date: 20060701
  Serious: Yes (Hospitalization)
  Sender: FDA-Public Use
  Company Number: US-ROCHE-431894

PATIENT
  Age: 56 Year
  Sex: Male

DRUGS (2)
  1. CAPECITABINE [Suspect]
     Indication: RECTAL CANCER
     Route: 048
     Dates: start: 20050306
  2. CPT-11 [Suspect]
     Indication: RECTAL CANCER
     Dosage: 190 MG WAS GIVEN FOR HIS FIRST COURSE, THEN DOSE WAS AMENDED TO 107 MG THEREAFTER.
     Route: 042
     Dates: start: 20050308

REACTIONS (3)
  - CHEST PAIN [None]
  - CHRONIC OBSTRUCTIVE PULMONARY DISEASE [None]
  - WHITE BLOOD CELL COUNT ABNORMAL [None]
